FAERS Safety Report 25955258 (Version 1)
Quarter: 2025Q4

REPORT INFORMATION
  Report Type: Report from Study
  Country: EU (occurrence: EU)
  Receive Date: 20251024
  Receipt Date: 20251024
  Transmission Date: 20260118
  Serious: Yes (Hospitalization)
  Sender: IPSEN BIOPHARMACEUTICALS, INC.
  Company Number: EU-SERVIER-S23001856

PATIENT
  Age: 56 Year
  Sex: Female
  Weight: 95 kg

DRUGS (7)
  1. ONIVYDE [Suspect]
     Active Substance: IRINOTECAN HYDROCHLORIDE
     Indication: Pancreatic carcinoma metastatic
     Dosage: 143.5 MG/DAY
     Dates: start: 20230208, end: 20230208
  2. ONIVYDE [Suspect]
     Active Substance: IRINOTECAN HYDROCHLORIDE
     Dosage: 101.5 MG/DAY
     Dates: start: 20230228
  3. FLUOROURACIL [Suspect]
     Active Substance: FLUOROURACIL
     Indication: Pancreatic carcinoma metastatic
     Dosage: 3940 MG/DAY, UNK FREQUENCY
     Dates: start: 20230208, end: 20230208
  4. LEUCOVORIN [Suspect]
     Active Substance: LEUCOVORIN\LEUCOVORIN CALCIUM
     Indication: Pancreatic carcinoma metastatic
     Dosage: 400 MG/DAY, UNK FREQUENCY
     Dates: start: 20230208, end: 20230208
  5. CREON [Concomitant]
     Active Substance: PANCRELIPASE AMYLASE\PANCRELIPASE LIPASE\PANCRELIPASE PROTEASE
     Indication: Pancreatic failure
     Dosage: 10000 UI, UNK
  6. INNOHEP [Concomitant]
     Active Substance: TINZAPARIN SODIUM
     Indication: Anticoagulation drug level therapeutic
     Dosage: 16000 UI, UNK
  7. OXYCODONE HYDROCHLORIDE [Concomitant]
     Active Substance: OXYCODONE HYDROCHLORIDE
     Indication: Pain
     Dosage: 10 MG, UNK

REACTIONS (2)
  - Diarrhoea [Recovered/Resolved]
  - General physical health deterioration [Recovered/Resolved]

NARRATIVE: CASE EVENT DATE: 20230216
